FAERS Safety Report 6168433-3 (Version None)
Quarter: 2009Q2

REPORT INFORMATION
  Report Type: 
  Country: None (occurrence: None)
  Receive Date: 20090427
  Receipt Date: 20090417
  Transmission Date: 20091009
  Serious: Yes (Hospitalization)
  Sender: FDA-Public Use
  Company Number: A0748430A

PATIENT
  Age: 59 Year
  Sex: Male
  Weight: 120.5 kg

DRUGS (3)
  1. AVANDIA [Suspect]
     Dosage: 4MG PER DAY
     Route: 048
     Dates: start: 20010301, end: 20071115
  2. PREVACID [Concomitant]
  3. NORVASC [Concomitant]

REACTIONS (1)
  - MYOCARDIAL INFARCTION [None]
